FAERS Safety Report 4600169-X (Version None)
Quarter: 2005Q1

REPORT INFORMATION
  Report Type: 
  Country: None (occurrence: None)
  Receive Date: 20050307
  Receipt Date: 20050201
  Transmission Date: 20050727
  Serious: Yes (Death, Life-Threatening, Hospitalization, Disabling)
  Sender: FDA-Public Use
  Company Number: GB-ROCHE-394483

PATIENT
  Age: 58 Year
  Sex: Male
  Weight: 77.1 kg

DRUGS (4)
  1. XELODA [Suspect]
     Route: 048
     Dates: start: 20041220, end: 20050117
  2. ST JOHN'S WORT [Concomitant]
     Indication: DEPRESSION
     Route: 048
     Dates: end: 20050117
  3. GLUCOSAMINE [Concomitant]
     Route: 048
     Dates: end: 20050117
  4. LISINOPRIL [Concomitant]
     Indication: HYPERTENSION
     Dosage: DOSAGE REGIMEN REPORTED AS: 20MG.
     Route: 048
     Dates: end: 20050117

REACTIONS (10)
  - BONE MARROW DEPRESSION [None]
  - COLITIS [None]
  - DIARRHOEA [None]
  - DRUG TOXICITY [None]
  - GENERAL PHYSICAL HEALTH DETERIORATION [None]
  - INFLAMMATORY BOWEL DISEASE [None]
  - NAUSEA [None]
  - TERMINAL STATE [None]
  - THERAPY NON-RESPONDER [None]
  - VOMITING [None]
